FAERS Safety Report 4449726-4 (Version None)
Quarter: 2004Q3

REPORT INFORMATION
  Report Type: 
  Country: None (occurrence: None)
  Receive Date: 20040915
  Receipt Date: 20040915
  Transmission Date: 20050211
  Serious: Yes (Other)
  Sender: FDA-Public Use
  Company Number: None

PATIENT
  Age: 89 Year
  Sex: Female
  Weight: 56.4 kg

DRUGS (6)
  1. CRESTOR [Suspect]
     Indication: HYPERLIPIDAEMIA
     Dosage: 10 MG QD ORAL
     Route: 048
     Dates: start: 20040213, end: 20040408
  2. ATENOLOL [Concomitant]
  3. DYAZIDE [Concomitant]
  4. NORVASC [Concomitant]
  5. MULTI-VITAMIN [Concomitant]
  6. B12 [Concomitant]

REACTIONS (1)
  - PLATELET COUNT DECREASED [None]
